FAERS Safety Report 21028544 (Version 1)
Quarter: 2022Q2

REPORT INFORMATION
  Report Type: Spontaneous
  Country: US (occurrence: None)
  Receive Date: 20220630
  Receipt Date: 20220630
  Transmission Date: 20220721
  Serious: No
  Sender: FDA-Public Use
  Company Number: None

PATIENT
  Age: 74 Year
  Sex: Male

DRUGS (1)
  1. ABIRATERONE [Suspect]
     Active Substance: ABIRATERONE
     Dosage: FREQUENCY : DAILY;?
     Route: 048
     Dates: start: 202202

REACTIONS (5)
  - Mental status changes [None]
  - Transient ischaemic attack [None]
  - Therapy interrupted [None]
  - Dysphagia [None]
  - Hypophagia [None]

NARRATIVE: CASE EVENT DATE: 20220619
